FAERS Safety Report 7842366-6 (Version None)
Quarter: 2011Q4

REPORT INFORMATION
  Report Type: 
  Country: None (occurrence: None)
  Receive Date: 20111025
  Receipt Date: 20111019
  Transmission Date: 20120403
  Serious: Yes (Other)
  Sender: FDA-Public Use
  Company Number: US-JNJFOC-20110908830

PATIENT
  Sex: Male

DRUGS (1)
  1. LEVAQUIN [Suspect]
     Indication: PRODUCT USED FOR UNKNOWN INDICATION
     Route: 042
     Dates: start: 20110130

REACTIONS (6)
  - TENDON INJURY [None]
  - BLINDNESS UNILATERAL [None]
  - EYE DISORDER [None]
  - RASH [None]
  - HYPOGLYCAEMIA [None]
  - MUSCULAR WEAKNESS [None]
